FAERS Safety Report 18532778 (Version 3)
Quarter: 2021Q1

REPORT INFORMATION
  Report Type: Report from Study
  Country: US (occurrence: US)
  Receive Date: 20201123
  Receipt Date: 20210310
  Transmission Date: 20210419
  Serious: Yes (Other)
  Sender: FDA-Public Use
  Company Number: US-BIOVITRUM-2020US4105

PATIENT
  Sex: Female

DRUGS (15)
  1. PREDNISONE. [Concomitant]
     Active Substance: PREDNISONE
  2. PROBENACID [Concomitant]
  3. COLCHICINE. [Concomitant]
     Active Substance: COLCHICINE
  4. FAMOTIDINE. [Concomitant]
     Active Substance: FAMOTIDINE
  5. CALCIUM LACTATE [Concomitant]
     Active Substance: CALCIUM LACTATE
  6. TIKOSYN [Concomitant]
     Active Substance: DOFETILIDE
  7. WARFARIN [Concomitant]
     Active Substance: WARFARIN
  8. ZYRTEC [Concomitant]
     Active Substance: CETIRIZINE HYDROCHLORIDE
  9. LEVOTHYROXINE. [Concomitant]
     Active Substance: LEVOTHYROXINE
  10. IBUPROFEN. [Concomitant]
     Active Substance: IBUPROFEN
  11. BYSTOLIC [Concomitant]
     Active Substance: NEBIVOLOL HYDROCHLORIDE
  12. POTASSIUM CHLORIDE. [Concomitant]
     Active Substance: POTASSIUM CHLORIDE
  13. KINERET [Suspect]
     Active Substance: ANAKINRA
     Indication: PRODUCT USED FOR UNKNOWN INDICATION
     Route: 058
     Dates: start: 20200730
  14. IRBASARTAN [Concomitant]
     Active Substance: IRBESARTAN
  15. FUROSEMIDE. [Concomitant]
     Active Substance: FUROSEMIDE

REACTIONS (13)
  - Arthralgia [Unknown]
  - Injection site erythema [Unknown]
  - Injection site swelling [Unknown]
  - Injection site rash [Recovering/Resolving]
  - Injection site reaction [Unknown]
  - Cerebrovascular accident [Unknown]
  - Injection site pain [Recovering/Resolving]
  - Nausea [Unknown]
  - Gastrointestinal disorder [Unknown]
  - Injection site discolouration [Recovered/Resolved]
  - Joint swelling [Unknown]
  - Abdominal pain upper [Unknown]
  - Abdominal pain [Unknown]
